FAERS Safety Report 19456353 (Version 1)
Quarter: 2021Q2

REPORT INFORMATION
  Report Type: Spontaneous
  Country: CN (occurrence: CN)
  Receive Date: 20210624
  Receipt Date: 20210624
  Transmission Date: 20210717
  Serious: Yes (Other)
  Sender: FDA-Public Use
  Company Number: CN-ROCHE-2854460

PATIENT
  Age: 41 Year
  Sex: Female

DRUGS (29)
  1. MABTHERA [Suspect]
     Active Substance: RITUXIMAB
     Indication: DIFFUSE LARGE B-CELL LYMPHOMA
     Dosage: R?DA?EPOCH, DAY0  CONTINUOUS INTRAVENOUS INJECTION FOR 24 HOURS
     Route: 042
     Dates: start: 20210220
  2. VINCRISTINE [Concomitant]
     Active Substance: VINCRISTINE
     Dosage: R?DA?EPOCH, DAY1?4
     Route: 042
     Dates: start: 20210220
  3. DOXORUBICIN [Concomitant]
     Active Substance: DOXORUBICIN
     Dosage: R?DA?EPOCH, DAY1
     Route: 042
     Dates: start: 20210220
  4. ETOPOSIDE. [Concomitant]
     Active Substance: ETOPOSIDE
     Indication: DIFFUSE LARGE B-CELL LYMPHOMA
     Dosage: CDOPE
     Dates: start: 20210126
  5. IFOSFAMIDE. [Concomitant]
     Active Substance: IFOSFAMIDE
     Indication: DIFFUSE LARGE B-CELL LYMPHOMA
     Dosage: R?DICE, DAY1?4
     Dates: start: 20210318
  6. DOXORUBICIN [Concomitant]
     Active Substance: DOXORUBICIN
     Dosage: R?CHOP, DAY1
     Dates: start: 20210520
  7. PREDNISONE ACETATE [Concomitant]
     Active Substance: PREDNISONE ACETATE
     Indication: DIFFUSE LARGE B-CELL LYMPHOMA
     Dosage: R?CHOP, DAY1?5
     Dates: start: 20210405, end: 20210504
  8. VINCRISTINE [Concomitant]
     Active Substance: VINCRISTINE
     Indication: DIFFUSE LARGE B-CELL LYMPHOMA
     Dosage: CDOPE
     Dates: start: 20210126
  9. VINCRISTINE [Concomitant]
     Active Substance: VINCRISTINE
     Dosage: R?CHOP, DAY1
     Dates: start: 20210405, end: 20210504
  10. CISPLATIN. [Concomitant]
     Active Substance: CISPLATIN
     Indication: DIFFUSE LARGE B-CELL LYMPHOMA
     Dosage: R?DICE, DAY1?4
     Dates: start: 20210318
  11. DEXAMETHASONE. [Concomitant]
     Active Substance: DEXAMETHASONE
     Indication: DIFFUSE LARGE B-CELL LYMPHOMA
     Dosage: R?DICE, DAY1?4
     Dates: start: 20210318
  12. CYTARABINE. [Concomitant]
     Active Substance: CYTARABINE
     Indication: DIFFUSE LARGE B-CELL LYMPHOMA
     Dosage: LUMBAR PUNCTURE + SHEATH INJECTION
     Dates: start: 20210318
  13. LENALIDOMIDE [Concomitant]
     Active Substance: LENALIDOMIDE
     Indication: DIFFUSE LARGE B-CELL LYMPHOMA
     Dosage: EVERY OTHER DAY FOR 10 DAYS
     Dates: start: 20210520
  14. CYCLOPHOSPHAMIDE. [Concomitant]
     Active Substance: CYCLOPHOSPHAMIDE
     Dosage: R?DA?EPOCH, DAY5
     Dates: start: 20210220
  15. CYCLOPHOSPHAMIDE. [Concomitant]
     Active Substance: CYCLOPHOSPHAMIDE
     Dosage: R?CHOP, DAY1
     Route: 041
     Dates: start: 20210520
  16. PREDNISONE. [Concomitant]
     Active Substance: PREDNISONE
     Dosage: R?DA?EPOCH, DAY1?5
     Dates: start: 20210220
  17. PREDNISONE ACETATE [Concomitant]
     Active Substance: PREDNISONE ACETATE
     Dosage: R?CHOP, DAY1?5
     Dates: start: 20210520
  18. DOXORUBICIN [Concomitant]
     Active Substance: DOXORUBICIN
     Indication: DIFFUSE LARGE B-CELL LYMPHOMA
     Dosage: CDOPE
     Dates: start: 20210126
  19. PREDNISONE. [Concomitant]
     Active Substance: PREDNISONE
     Indication: DIFFUSE LARGE B-CELL LYMPHOMA
     Dosage: CDOPE
     Dates: start: 20210126
  20. ETOPOSIDE. [Concomitant]
     Active Substance: ETOPOSIDE
     Dosage: R?DICE, DAY1?4
     Dates: start: 20210318
  21. DEXAMETHASONE. [Concomitant]
     Active Substance: DEXAMETHASONE
     Dosage: LUMBAR PUNCTURE + SHEATH INJECTION
     Dates: start: 20210318
  22. CYCLOPHOSPHAMIDE. [Concomitant]
     Active Substance: CYCLOPHOSPHAMIDE
     Indication: DIFFUSE LARGE B-CELL LYMPHOMA
     Dosage: CDOPE
     Dates: start: 20210126
  23. ETOPOSIDE. [Concomitant]
     Active Substance: ETOPOSIDE
     Dosage: R?DA?EPOCH, DAY1?4
     Route: 042
     Dates: start: 20210220
  24. METHOTREXATE. [Concomitant]
     Active Substance: METHOTREXATE
     Indication: DIFFUSE LARGE B-CELL LYMPHOMA
     Dosage: LUMBAR PUNCTURE + SHEATH INJECTION
     Dates: start: 20210318
  25. MABTHERA [Suspect]
     Active Substance: RITUXIMAB
     Dosage: R?DICE, DAY0
     Route: 042
     Dates: start: 20210318
  26. MABTHERA [Suspect]
     Active Substance: RITUXIMAB
     Dosage: R?CHOP, DAY0
     Route: 042
     Dates: start: 20210405
  27. CYCLOPHOSPHAMIDE. [Concomitant]
     Active Substance: CYCLOPHOSPHAMIDE
     Dosage: R?CHOP, DAY1
     Route: 041
     Dates: start: 20210405, end: 20210504
  28. VINCRISTINE [Concomitant]
     Active Substance: VINCRISTINE
     Dosage: R?CHOP, DAY1
     Route: 041
     Dates: start: 20210520
  29. DOXORUBICIN [Concomitant]
     Active Substance: DOXORUBICIN
     Dosage: R?CHOP, DAY1
     Dates: start: 20210405, end: 20210504

REACTIONS (2)
  - Myelosuppression [Unknown]
  - Gastrointestinal disorder [Unknown]
